FAERS Safety Report 10930656 (Version 1)
Quarter: 2015Q1

REPORT INFORMATION
  Report Type: Spontaneous
  Country: GB (occurrence: None)
  Receive Date: 20150317
  Receipt Date: 20150317
  Transmission Date: 20150721
  Serious: Yes (Hospitalization)
  Sender: FDA-Public Use
  Company Number: GB-20150008

PATIENT
  Age: 75 Year
  Sex: Male
  Weight: 80 kg

DRUGS (1)
  1. DOTAREM [Suspect]
     Active Substance: GADOTERATE MEGLUMINE
     Indication: NUCLEAR MAGNETIC RESONANCE IMAGING
     Dosage: (NOT OTHERWISE SPECIFIED)
     Route: 042
     Dates: start: 20150227, end: 20150227

REACTIONS (3)
  - Malaise [None]
  - Oedema [None]
  - Erythema [None]

NARRATIVE: CASE EVENT DATE: 20150227
